FAERS Safety Report 8794719 (Version 2)
Quarter: 2012Q4

REPORT INFORMATION
  Report Type: 
  Country: US (occurrence: US)
  Receive Date: 20120917
  Receipt Date: 20121019
  Transmission Date: 20130627
  Serious: No
  Sender: FDA-Public Use
  Company Number: US-B.I. PHARMACEUTICALS,INC./RIDGEFIELD-2012-BP-22508BP

PATIENT
  Sex: Female
  Weight: 86 kg

DRUGS (3)
  1. SPIRIVA [Suspect]
     Indication: EMPHYSEMA
     Dosage: 18 mcg
     Route: 055
     Dates: start: 2005
  2. LORSARTAN HCTZ [Concomitant]
     Indication: HYPERTENSION
     Route: 048
     Dates: start: 2002
  3. ALENDRONATE [Concomitant]
     Indication: BONE DISORDER
     Route: 048

REACTIONS (4)
  - Cataract [Recovered/Resolved]
  - Dry mouth [Not Recovered/Not Resolved]
  - Nausea [Recovered/Resolved]
  - Product quality issue [Recovered/Resolved]
